FAERS Safety Report 13803313 (Version 3)
Quarter: 2017Q4

REPORT INFORMATION
  Report Type: Spontaneous
  Country: US (occurrence: US)
  Receive Date: 20170728
  Receipt Date: 20171123
  Transmission Date: 20180320
  Serious: Yes (Other)
  Sender: FDA-Public Use
  Company Number: US-CONCORDIA PHARMACEUTICALS INC.-GSH201707-004428

PATIENT
  Age: 47 Year
  Sex: Female
  Weight: 85.7 kg

DRUGS (14)
  1. MOVANTIK [Concomitant]
     Active Substance: NALOXEGOL OXALATE
     Dates: start: 20161103
  2. ENBREL [Suspect]
     Active Substance: ETANERCEPT
     Indication: RHEUMATOID ARTHRITIS
     Route: 058
     Dates: start: 201704, end: 20170415
  3. PREDNISONE. [Concomitant]
     Active Substance: PREDNISONE
     Dates: start: 20170315
  4. NEURONTIN [Concomitant]
     Active Substance: GABAPENTIN
     Dates: start: 20170404
  5. NORCO [Concomitant]
     Active Substance: ACETAMINOPHEN\HYDROCODONE BITARTRATE
     Dates: start: 20170323
  6. METHOTREXATE TABLET [Suspect]
     Active Substance: METHOTREXATE
     Indication: RHEUMATOID ARTHRITIS
     Dosage: 2.5 MG (6 TABLETS BY MOUTH ONCE WEEKLY)
     Route: 048
  7. SULFASALAZINE. [Suspect]
     Active Substance: SULFASALAZINE
     Indication: RHEUMATOID ARTHRITIS
     Route: 065
  8. LEVOCETIRIZINE DIHYDROCHLORIDE. [Concomitant]
     Active Substance: LEVOCETIRIZINE DIHYDROCHLORIDE
     Dates: start: 20170418
  9. PLAQUENIL [Suspect]
     Active Substance: HYDROXYCHLOROQUINE SULFATE
     Indication: RHEUMATOID ARTHRITIS
     Route: 048
     Dates: start: 20160922
  10. XELJANZ [Concomitant]
     Active Substance: TOFACITINIB CITRATE
  11. ARAVA [Concomitant]
     Active Substance: LEFLUNOMIDE
     Dates: start: 20170404
  12. TRAMADOL HCL [Concomitant]
     Active Substance: TRAMADOL HYDROCHLORIDE
     Dates: start: 20170314
  13. FOSAMAX [Concomitant]
     Active Substance: ALENDRONATE SODIUM
     Dates: start: 20160707
  14. ESTRADIOL. [Concomitant]
     Active Substance: ESTRADIOL
     Dates: start: 20160418

REACTIONS (18)
  - Gastritis [Unknown]
  - Gastrointestinal disorder [Unknown]
  - Abdominal discomfort [Unknown]
  - Dyspnoea [Unknown]
  - Dysphagia [Recovered/Resolved]
  - Sleep disorder [Unknown]
  - Asthenia [Unknown]
  - Fatigue [Unknown]
  - Chest pain [Recovered/Resolved]
  - Rash [Recovered/Resolved]
  - Vision blurred [Unknown]
  - Constipation [Unknown]
  - Headache [Unknown]
  - Feeling abnormal [Unknown]
  - Rheumatoid arthritis [Not Recovered/Not Resolved]
  - Weight increased [Unknown]
  - Alopecia [Unknown]
  - Drug ineffective [Unknown]

NARRATIVE: CASE EVENT DATE: 20170302
